FAERS Safety Report 22330786 (Version 1)
Quarter: 2023Q2

REPORT INFORMATION
  Report Type: Report from Study
  Country: US (occurrence: None)
  Receive Date: 20230517
  Receipt Date: 20230517
  Transmission Date: 20230722
  Serious: Yes (Life-Threatening)
  Sender: FDA-Public Use
  Company Number: US-ROCHE-3349314

PATIENT

DRUGS (8)
  1. RITUXIMAB [Suspect]
     Active Substance: RITUXIMAB
     Indication: Marginal zone lymphoma
     Route: 041
     Dates: start: 20131213, end: 20131213
  2. CYCLOPHOSPHAMIDE [Suspect]
     Active Substance: CYCLOPHOSPHAMIDE
     Indication: Marginal zone lymphoma
     Route: 065
     Dates: start: 20131218, end: 20131218
  3. DOXORUBICIN [Suspect]
     Active Substance: DOXORUBICIN
     Indication: Marginal zone lymphoma
     Route: 065
     Dates: start: 20131213, end: 20131216
  4. ETOPOSIDE [Suspect]
     Active Substance: ETOPOSIDE
     Indication: Marginal zone lymphoma
     Route: 065
     Dates: start: 20131213, end: 20131216
  5. METHOTREXATE [Suspect]
     Active Substance: METHOTREXATE
     Indication: Marginal zone lymphoma
     Dosage: ON 24/DEC/2013, 20/DEC/2013, 18/DEC/2013 SAME DOSAGE REGIMEN WAS GIVEN.
     Route: 065
     Dates: start: 20131226, end: 20131226
  6. PREDNISONE [Suspect]
     Active Substance: PREDNISONE
     Indication: Marginal zone lymphoma
     Route: 065
     Dates: start: 20131213, end: 20131217
  7. VINCRISTINE [Suspect]
     Active Substance: VINCRISTINE
     Indication: Marginal zone lymphoma
     Route: 065
     Dates: start: 20131213, end: 20131216
  8. FILGRASTIM [Suspect]
     Active Substance: FILGRASTIM
     Indication: Marginal zone lymphoma
     Dosage: DOSE 8160 MCG
     Route: 065
     Dates: start: 20131218, end: 20140103

REACTIONS (2)
  - Respiratory failure [Recovered/Resolved]
  - Sepsis [Not Recovered/Not Resolved]

NARRATIVE: CASE EVENT DATE: 20131213
